FAERS Safety Report 4319010-8 (Version None)
Quarter: 2004Q1

REPORT INFORMATION
  Report Type: 
  Country: None (occurrence: None)
  Receive Date: 20040316
  Receipt Date: 20040302
  Transmission Date: 20041129
  Serious: Yes (Death, Life-Threatening, Hospitalization, Other)
  Sender: FDA-Public Use
  Company Number: 2004-BP-01554RA

PATIENT
  Age: 68 Year
  Sex: Male

DRUGS (1)
  1. SPIRIVA [Suspect]
     Indication: CHRONIC OBSTRUCTIVE AIRWAYS DISEASE
     Dosage: 18 MCG (18 MCG, 18 MCG/D), IH
     Route: 055
     Dates: start: 20040105, end: 20040223

REACTIONS (4)
  - CONDITION AGGRAVATED [None]
  - LUNG ADENOCARCINOMA [None]
  - METASTASES TO PLEURA [None]
  - RESPIRATORY FAILURE [None]
